FAERS Safety Report 5285566-4 (Version None)
Quarter: 2007Q1

REPORT INFORMATION
  Report Type: 
  Country: None (occurrence: None)
  Receive Date: 20061229
  Receipt Date: 20060914
  Transmission Date: 20070707
  Serious: Yes (Other)
  Sender: FDA-Public Use
  Company Number: 2006UW18067

PATIENT
  Age: 86 Year
  Sex: Female

DRUGS (3)
  1. CRESTOR [Suspect]
     Indication: BLOOD CHOLESTEROL INCREASED
  2. LASIX [Concomitant]
  3. BLOOD PRESSURE PILL [Concomitant]

REACTIONS (2)
  - FLUSHING [None]
  - NIGHT SWEATS [None]
